FAERS Safety Report 10966614 (Version 1)
Quarter: 2015Q1

REPORT INFORMATION
  Report Type: Spontaneous
  Country: None (occurrence: None)
  Receive Date: 20150226
  Receipt Date: 20150226
  Transmission Date: 20150721
  Serious: No
  Sender: FDA-Public Use
  Company Number: TPA2009A02484

PATIENT
  Age: 83 Year
  Sex: Female
  Weight: 74.84 kg

DRUGS (1)
  1. ULORIC [Suspect]
     Active Substance: FEBUXOSTAT
     Indication: GOUT
     Route: 048
     Dates: start: 20090722, end: 20090803

REACTIONS (6)
  - Rash [None]
  - Red blood cell count decreased [None]
  - White blood cell count increased [None]
  - Alanine aminotransferase increased [None]
  - Gout [None]
  - Red blood cell sedimentation rate increased [None]

NARRATIVE: CASE EVENT DATE: 20090722
